FAERS Safety Report 6146819-0 (Version None)
Quarter: 2009Q2

REPORT INFORMATION
  Report Type: 
  Country: None (occurrence: None)
  Receive Date: 20090406
  Receipt Date: 20090406
  Transmission Date: 20091009
  Serious: Yes (Disabling)
  Sender: FDA-Public Use
  Company Number: None

PATIENT
  Sex: Female
  Weight: 61.2356 kg

DRUGS (16)
  1. REMERON [Suspect]
     Indication: DEPRESSION
     Dosage: 30 MG 1 AT BEDTIME
  2. VICODIN [Concomitant]
  3. ZYRTEC [Concomitant]
  4. PSEDOPHEDRIN [Concomitant]
  5. NASONEX [Concomitant]
  6. ZITHROMAX [Concomitant]
  7. COLON PREP KIT [Concomitant]
  8. PREDNISOLONE [Concomitant]
  9. MOTRIN [Concomitant]
  10. MIRALAX [Concomitant]
  11. LIBRAX [Concomitant]
  12. OTC ACNE MEDICATIONS [Concomitant]
  13. SOAPS [Concomitant]
  14. SCRUBS [Concomitant]
  15. HARD CANDY [Concomitant]
  16. POPSICL [Concomitant]

REACTIONS (6)
  - FLUID RETENTION [None]
  - GASTRIC DISORDER [None]
  - MUSCLE SPASMS [None]
  - OROPHARYNGEAL PAIN [None]
  - SINUSITIS [None]
  - URINARY TRACT INFECTION [None]
